FAERS Safety Report 5671597-9 (Version None)
Quarter: 2008Q1

REPORT INFORMATION
  Report Type: 
  Country: None (occurrence: None)
  Receive Date: 20080313
  Receipt Date: 20080310
  Transmission Date: 20080703
  Serious: Yes (Hospitalization)
  Sender: FDA-Public Use
  Company Number: GRT 2008-10358

PATIENT
  Age: 80 Year
  Sex: Female

DRUGS (5)
  1. LIDOCAINE [Suspect]
     Indication: POST HERPETIC NEURALGIA
     Dates: start: 20031010
  2. ENALAPRIL MALEATE [Concomitant]
  3. ADIRO [Concomitant]
  4. ATENOLOL [Concomitant]
  5. SEGURIL [Concomitant]

REACTIONS (3)
  - ACUTE CORONARY SYNDROME [None]
  - ATRIAL FIBRILLATION [None]
  - MYOCARDIAL INFARCTION [None]
